FAERS Safety Report 4429284-0 (Version None)
Quarter: 2004Q3

REPORT INFORMATION
  Report Type: 
  Country: None (occurrence: None)
  Receive Date: 20040818
  Receipt Date: 20040818
  Transmission Date: 20050211
  Serious: Yes (Life-Threatening)
  Sender: FDA-Public Use
  Company Number: None

PATIENT
  Age: 30 Year
  Sex: Female
  Weight: 78.6 kg

DRUGS (1)
  1. POLYGAM [Suspect]
     Indication: THROMBOTIC THROMBOCYTOPENIC PURPURA
     Dosage: 78GM  DAILY  INTRAVENOUS
     Route: 042
     Dates: start: 20040404, end: 20040405

REACTIONS (5)
  - APHASIA [None]
  - CONFUSIONAL STATE [None]
  - FACIAL PARESIS [None]
  - HEMIPARESIS [None]
  - SPEECH DISORDER [None]
